FAERS Safety Report 26154702 (Version 1)
Quarter: 2025Q4

REPORT INFORMATION
  Report Type: Other
  Country: JP (occurrence: JP)
  Receive Date: 20251215
  Receipt Date: 20251215
  Transmission Date: 20260118
  Serious: Yes (Hospitalization, Other)
  Sender: ANI
  Company Number: JP-ANIPHARMA-035524

PATIENT
  Age: 50 Year
  Sex: Female

DRUGS (4)
  1. CYCLOPHOSPHAMIDE [Suspect]
     Active Substance: CYCLOPHOSPHAMIDE
     Indication: Post transplant lymphoproliferative disorder
     Dosage: R-CHOP CHEMOTHERAPY, ONLY TWO COURSES
  2. RITUXIMAB [Concomitant]
     Active Substance: RITUXIMAB
     Indication: Post transplant lymphoproliferative disorder
     Dosage: R-CHOP CHEMOTHERAPY, ONLY TWO COURSES
  3. DOXORUBICIN [Concomitant]
     Active Substance: DOXORUBICIN
     Indication: Post transplant lymphoproliferative disorder
     Dosage: R-CHOP CHEMOTHERAPY, ONLY TWO COURSES
  4. PREDNISOLONE [Concomitant]
     Active Substance: PREDNISOLONE
     Indication: Post transplant lymphoproliferative disorder
     Dosage: R-CHOP CHEMOTHERAPY, ONLY TWO COURSES

REACTIONS (1)
  - Cytomegalovirus chorioretinitis [Unknown]
